FAERS Safety Report 7574205-5 (Version None)
Quarter: 2011Q2

REPORT INFORMATION
  Report Type: 
  Country: None (occurrence: None)
  Receive Date: 20110627
  Receipt Date: 20110620
  Transmission Date: 20111010
  Serious: Yes (Other)
  Sender: FDA-Public Use
  Company Number: FR-TEVA-283405ISR

PATIENT
  Sex: Female

DRUGS (4)
  1. COPAXONE [Suspect]
     Indication: MULTIPLE SCLEROSIS
     Dosage: 20 MILLIGRAM;
     Dates: start: 20110413, end: 20110520
  2. LISINOPRIL/HYDROKLORTIAZID 12.5 MG/ 20 MG [Concomitant]
     Indication: HYPERTENSION
     Route: 048
     Dates: start: 20080101
  3. CLONAZEPAM [Concomitant]
     Indication: PAIN
     Dosage: 10 GTT;
     Route: 048
     Dates: start: 19970101
  4. HYDROXYZINE [Concomitant]
     Indication: ANXIETY
     Dosage: 75 MILLIGRAM;
     Route: 048
     Dates: start: 19970101

REACTIONS (3)
  - DERMATITIS BULLOUS [None]
  - SKIN DISCOLOURATION [None]
  - PRURITUS [None]
